FAERS Safety Report 5595534-0 (Version None)
Quarter: 2008Q1

REPORT INFORMATION
  Report Type: 
  Country: None (occurrence: None)
  Receive Date: 20080118
  Receipt Date: 20080114
  Transmission Date: 20080703
  Serious: Yes (Hospitalization, Other)
  Sender: FDA-Public Use
  Company Number: US-JNJFOC-20071005431

PATIENT
  Sex: Female
  Weight: 96.62 kg

DRUGS (6)
  1. REMICADE [Suspect]
     Route: 042
  2. REMICADE [Suspect]
     Route: 042
  3. REMICADE [Suspect]
     Indication: RHEUMATOID ARTHRITIS
     Route: 042
  4. IMURAN [Concomitant]
  5. PLAQUENIL [Concomitant]
  6. PREDNISONE [Concomitant]

REACTIONS (3)
  - DISSEMINATED TUBERCULOSIS [None]
  - GASTROINTESTINAL HAEMORRHAGE [None]
  - MILIARY PNEUMONIA [None]
